FAERS Safety Report 5031546-3 (Version None)
Quarter: 2006Q2

REPORT INFORMATION
  Report Type: 
  Country: None (occurrence: None)
  Receive Date: 20060616
  Receipt Date: 20060601
  Transmission Date: 20061013
  Serious: Yes (Death)
  Sender: FDA-Public Use
  Company Number: 226066

PATIENT
  Age: 79 Year
  Sex: Female

DRUGS (3)
  1. AVASTIN [Suspect]
     Indication: PANCREATIC CARCINOMA
     Dosage: 5 MG/KG, INTRAVENOUS
     Route: 042
     Dates: start: 20051117
  2. GEMCITABINE [Suspect]
     Indication: PANCREATIC CARCINOMA
     Dosage: 1 G/M2, INTRAVENOUS
     Route: 042
     Dates: start: 20051117
  3. RADIOTHERAPY (RADIATION THERAPY) [Concomitant]

REACTIONS (4)
  - ASTHENIA [None]
  - DECREASED ACTIVITY [None]
  - DECREASED APPETITE [None]
  - FATIGUE [None]
